FAERS Safety Report 8867121 (Version 1)
Quarter: 2012Q4

REPORT INFORMATION
  Report Type: 
  Country: US (occurrence: US)
  Receive Date: 20121025
  Receipt Date: 20121025
  Transmission Date: 20130627
  Serious: No
  Sender: FDA-Public Use
  Company Number: US-AMGEN-USASP2012014998

PATIENT
  Age: 43 Year
  Sex: Female
  Weight: 64.4 kg

DRUGS (4)
  1. ENBREL [Suspect]
     Indication: PRODUCT USED FOR UNKNOWN INDICATION
     Dosage: 50 mg, qwk
     Route: 058
  2. AZITHROMYCIN [Concomitant]
     Dosage: 5 ml, UNK
  3. OSCAL [Concomitant]
     Dosage: UNK
  4. VITAMIN E                          /00110501/ [Concomitant]
     Dosage: 100 UNK, UNK

REACTIONS (5)
  - Haemoglobin decreased [Unknown]
  - Vomiting [Unknown]
  - Increased upper airway secretion [Unknown]
  - Diarrhoea [Unknown]
  - Bronchitis [Unknown]
